FAERS Safety Report 7470649-0 (Version None)
Quarter: 2011Q2

REPORT INFORMATION
  Report Type: 
  Country: None (occurrence: None)
  Receive Date: 20110506
  Receipt Date: 20110506
  Transmission Date: 20111010
  Serious: Yes (Hospitalization)
  Sender: FDA-Public Use
  Company Number: None

PATIENT
  Age: 71 Year
  Sex: Male
  Weight: 83 kg

DRUGS (1)
  1. DORIBAX [Suspect]
     Indication: PANCREATITIS NECROTISING
     Dates: start: 20101203, end: 20101218

REACTIONS (1)
  - CONVULSION [None]
